FAERS Safety Report 8566887-6 (Version None)
Quarter: 2012Q3

REPORT INFORMATION
  Report Type: 
  Country: None (occurrence: None)
  Receive Date: 20120803
  Receipt Date: 20111031
  Transmission Date: 20120928
  Serious: No
  Sender: FDA-Public Use
  Company Number: US-ABBOTT-11P-163-0869830-00

PATIENT
  Sex: Female

DRUGS (8)
  1. NIASPAN [Suspect]
     Dosage: 2000 MG AT BEDTIME
     Route: 048
     Dates: end: 20101101
  2. TRILIPIX [Concomitant]
     Indication: PRODUCT USED FOR UNKNOWN INDICATION
     Route: 048
  3. NIASPAN [Suspect]
     Indication: PRODUCT USED FOR UNKNOWN INDICATION
     Dosage: 500 MG AT BEDTIME
     Route: 048
     Dates: start: 20081101
  4. NIASPAN [Suspect]
     Dosage: 1000 MG AT BEDTIME
     Route: 048
  5. NIASPAN [Suspect]
     Dosage: 1500 MG AT BEDTIME
     Route: 048
  6. ASPIRIN [Concomitant]
     Indication: PRODUCT USED FOR UNKNOWN INDICATION
     Route: 048
  7. WELCHOL [Concomitant]
     Indication: PRODUCT USED FOR UNKNOWN INDICATION
     Route: 048
  8. PEPCID [Concomitant]
     Indication: PRODUCT USED FOR UNKNOWN INDICATION
     Route: 048

REACTIONS (11)
  - FEELING HOT [None]
  - PARAESTHESIA [None]
  - FLUSHING [None]
  - PRURITUS [None]
  - TYPE 2 DIABETES MELLITUS [None]
  - BLOOD GLUCOSE INCREASED [None]
  - GALLBLADDER DISORDER [None]
  - ERYTHEMA [None]
  - GALLBLADDER PAIN [None]
  - CHEST PAIN [None]
  - CHOLELITHIASIS [None]
